FAERS Safety Report 4683008-0 (Version None)
Quarter: 2005Q2

REPORT INFORMATION
  Report Type: 
  Country: None (occurrence: None)
  Receive Date: 20050602
  Receipt Date: 20050323
  Transmission Date: 20051028
  Serious: No
  Sender: FDA-Public Use
  Company Number: USA050393872

PATIENT
  Age: 51 Year
  Sex: Female

DRUGS (2)
  1. CYMBALTA [Suspect]
     Indication: DEPRESSION
     Dosage: 30 MG DAY
     Dates: start: 20050310
  2. ZESTRIL [Concomitant]

REACTIONS (3)
  - HEADACHE [None]
  - IMPAIRED WORK ABILITY [None]
  - SINUSITIS [None]
